FAERS Safety Report 19173457 (Version 1)
Quarter: 2021Q2

REPORT INFORMATION
  Report Type: Spontaneous
  Country: US (occurrence: US)
  Receive Date: 20210423
  Receipt Date: 20210423
  Transmission Date: 20210717
  Serious: No
  Sender: FDA-Public Use
  Company Number: US-TEVA-2021-US-1901155

PATIENT
  Age: 77 Year
  Sex: Female

DRUGS (1)
  1. AMOXICILLIN AND CLAVULANATE POTASSIUM TEVA [Suspect]
     Active Substance: AMOXICILLIN\CLAVULANATE POTASSIUM
     Dosage: 500?125 MG TABLETS
     Route: 065

REACTIONS (3)
  - Product quality issue [Unknown]
  - Product dose omission issue [Unknown]
  - Dysphagia [Unknown]
